FAERS Safety Report 7714645-4 (Version None)
Quarter: 2011Q3

REPORT INFORMATION
  Report Type: 
  Country: None (occurrence: None)
  Receive Date: 20110829
  Receipt Date: 20110824
  Transmission Date: 20111222
  Serious: Yes (Other)
  Sender: FDA-Public Use
  Company Number: US-AMGEN-USASP2011039323

PATIENT
  Age: 67 Year
  Sex: Female

DRUGS (1)
  1. NPLATE [Suspect]
     Indication: IDIOPATHIC THROMBOCYTOPENIC PURPURA
     Dosage: 1.3 MUG/KG, UNK
     Dates: start: 20100830, end: 20110503

REACTIONS (3)
  - DIZZINESS [None]
  - THROMBOCYTOPENIA [None]
  - FATIGUE [None]
